FAERS Safety Report 7875867-5 (Version None)
Quarter: 2011Q4

REPORT INFORMATION
  Report Type: 
  Country: None (occurrence: None)
  Receive Date: 20111031
  Receipt Date: 20111018
  Transmission Date: 20120403
  Serious: Yes (Hospitalization, Other)
  Sender: FDA-Public Use
  Company Number: GR-ROCHE-1007273

PATIENT
  Age: 60 Year
  Sex: Female

DRUGS (3)
  1. MEDROL [Concomitant]
  2. XOLAIR [Suspect]
     Indication: ASTHMA
     Route: 058
     Dates: start: 20110331
  3. CEFPROZIL [Concomitant]
     Dosage: 500 FOR 8 DAYS

REACTIONS (2)
  - ERYTHEMA [None]
  - URTICARIA [None]
